FAERS Safety Report 6637392-9 (Version None)
Quarter: 2010Q1

REPORT INFORMATION
  Report Type: 
  Country: None (occurrence: None)
  Receive Date: 20100316
  Receipt Date: 20100310
  Transmission Date: 20100710
  Serious: Yes (Other)
  Sender: FDA-Public Use
  Company Number: AU-MERCK-1002USA01512

PATIENT
  Age: 59 Year
  Sex: Female
  Weight: 119 kg

DRUGS (4)
  1. JANUVIA [Suspect]
     Indication: TYPE 2 DIABETES MELLITUS
     Route: 048
     Dates: start: 20100202, end: 20100208
  2. LIPITOR [Concomitant]
     Indication: HYPERLIPIDAEMIA
     Route: 065
     Dates: start: 20040101
  3. LYRICA [Concomitant]
     Indication: TRIGEMINAL NEURALGIA
     Route: 065
     Dates: start: 20070101
  4. DIAMICRON MR [Concomitant]
     Indication: TYPE 2 DIABETES MELLITUS
     Route: 065
     Dates: end: 20100125

REACTIONS (1)
  - CARDIAC FAILURE [None]
